FAERS Safety Report 15053014 (Version 4)
Quarter: 2020Q3

REPORT INFORMATION
  Report Type: Report from Study
  Country: DE (occurrence: DE)
  Receive Date: 20180622
  Receipt Date: 20181029
  Transmission Date: 20201105
  Serious: Yes (Death)
  Sender: FDA-Public Use
  Company Number: DE-ASTRAZENECA-2018SE72189

PATIENT
  Age: 60 Year
  Sex: Male

DRUGS (13)
  1. AMLODIPIN [Concomitant]
     Active Substance: AMLODIPINE BESYLATE
     Indication: HYPERTENSION
     Route: 042
     Dates: end: 20180527
  2. GEMCITABINE. [Suspect]
     Active Substance: GEMCITABINE
     Indication: NON-SMALL CELL LUNG CANCER
     Dosage: 1250.0 MG/M2
     Route: 042
     Dates: start: 20180508, end: 20180508
  3. GEMCITABINE. [Suspect]
     Active Substance: GEMCITABINE
     Indication: NON-SMALL CELL LUNG CANCER
     Dosage: 1250.0 MG/M2
     Route: 042
     Dates: start: 20180515, end: 20180515
  4. RAMIPRIL. [Concomitant]
     Active Substance: RAMIPRIL
     Indication: HYPERTENSION
     Route: 048
     Dates: end: 20180527
  5. HYDROCHLOROTHIAZID [Concomitant]
     Active Substance: HYDROCHLOROTHIAZIDE
     Indication: ISCHAEMIC CARDIOMYOPATHY
     Route: 048
  6. DEXAMETHASONE. [Concomitant]
     Active Substance: DEXAMETHASONE
     Indication: PROPHYLAXIS
     Route: 048
     Dates: start: 20180507, end: 20180527
  7. TREMELIMUMAB. [Suspect]
     Active Substance: TREMELIMUMAB
     Indication: NON-SMALL CELL LUNG CANCER
     Route: 042
     Dates: start: 20180508, end: 20180508
  8. ACETYLSALICYLIC ACID [Concomitant]
     Active Substance: ASPIRIN
     Indication: CEREBROVASCULAR ACCIDENT
     Route: 048
  9. PANTOPRAZOLE [Concomitant]
     Active Substance: PANTOPRAZOLE
     Indication: INTESTINAL PERFORATION
     Route: 048
  10. CARBOPLATIN. [Suspect]
     Active Substance: CARBOPLATIN
     Indication: NON-SMALL CELL LUNG CANCER
     Dosage: 5.0 AUC
     Route: 042
     Dates: start: 20180508, end: 20180508
  11. MEDI4736 [Suspect]
     Active Substance: DURVALUMAB
     Indication: NON-SMALL CELL LUNG CANCER
     Route: 042
     Dates: start: 20180508, end: 20180508
  12. METFORMIN [Concomitant]
     Active Substance: METFORMIN HYDROCHLORIDE
     Indication: DIABETES MELLITUS
     Route: 048
  13. METO HEXAL [Concomitant]
     Indication: HYPERTENSION
     Route: 048

REACTIONS (1)
  - Death [Fatal]

NARRATIVE: CASE EVENT DATE: 20180527
